FAERS Safety Report 8699425 (Version 2)
Quarter: 2013Q3

REPORT INFORMATION
  Report Type: Spontaneous
  Country: US (occurrence: US)
  Receive Date: 20120802
  Receipt Date: 20130819
  Transmission Date: 20140515
  Serious: No
  Sender: FDA-Public Use
  Company Number: US-BRISTOL-MYERS SQUIBB COMPANY-16273252

PATIENT
  Age: 51 Year
  Sex: Female
  Weight: 68 kg

DRUGS (3)
  1. REYATAZ CAPS 300 MG [Suspect]
     Indication: HIV INFECTION
     Dates: start: 201111
  2. NORVIR [Suspect]
  3. TRUVADA [Suspect]

REACTIONS (4)
  - Headache [Unknown]
  - Abdominal pain upper [Unknown]
  - Pruritus [Unknown]
  - Seasonal allergy [Unknown]
